FAERS Safety Report 6525446-7 (Version None)
Quarter: 2009Q4

REPORT INFORMATION
  Report Type: 
  Country: None (occurrence: None)
  Receive Date: 20091214
  Receipt Date: 20090505
  Transmission Date: 20100525
  Serious: Yes (Hospitalization)
  Sender: FDA-Public Use
  Company Number: 631332

PATIENT
  Age: 46 Year
  Sex: Female

DRUGS (2)
  1. PEGASYS [Suspect]
     Indication: HEPATITIS C
     Dosage: 180 UG 1 PER WEEK SUBCUTANEOUS
     Route: 058
     Dates: start: 20081101, end: 20081201
  2. RIBAVIRIN [Suspect]
     Indication: HEPATITIS C
     Dates: start: 20081101, end: 20081201

REACTIONS (1)
  - FEBRILE NEUTROPENIA [None]
